FAERS Safety Report 15404840 (Version 2)
Quarter: 2019Q2

REPORT INFORMATION
  Report Type: Report from Study
  Country: None (occurrence: US)
  Receive Date: 20180919
  Receipt Date: 20190428
  Transmission Date: 20190711
  Serious: Yes (Hospitalization)
  Sender: FDA-Public Use
  Company Number: US-ABBVIE-18K-163-2487149-00

PATIENT
  Age: 70 Year
  Sex: Male
  Weight: 136.2 kg

DRUGS (1)
  1. HUMIRA [Suspect]
     Active Substance: ADALIMUMAB
     Indication: PSORIASIS
     Route: 058
     Dates: end: 20180813

REACTIONS (9)
  - Skin exfoliation [Not Recovered/Not Resolved]
  - Vascular access site complication [Recovered/Resolved]
  - Skin haemorrhage [Not Recovered/Not Resolved]
  - Infusion site bruising [Recovering/Resolving]
  - Pneumonia [Recovered/Resolved]
  - Fall [Recovered/Resolved]
  - Paraesthesia [Recovered/Resolved]
  - Pneumonia staphylococcal [Recovered/Resolved]
  - Loss of consciousness [Unknown]

NARRATIVE: CASE EVENT DATE: 2018
